FAERS Safety Report 5589699-4 (Version None)
Quarter: 2008Q1

REPORT INFORMATION
  Report Type: 
  Country: None (occurrence: None)
  Receive Date: 20080114
  Receipt Date: 20080107
  Transmission Date: 20080703
  Serious: Yes (Hospitalization)
  Sender: FDA-Public Use
  Company Number: B0496991A

PATIENT
  Age: 57 Year
  Sex: Female

DRUGS (8)
  1. AVANDAMET [Suspect]
     Dosage: 1TAB TWICE PER DAY
     Route: 048
     Dates: start: 20071010, end: 20071119
  2. LANTUS [Concomitant]
     Dosage: 80UNIT PER DAY
     Route: 058
  3. NORVASC [Concomitant]
     Indication: HYPERTENSION
     Dosage: 10MG PER DAY
     Route: 048
  4. SIMVASTATIN [Concomitant]
     Dosage: 40MG PER DAY
     Route: 048
  5. EZETROL [Concomitant]
     Dosage: 10MG PER DAY
     Route: 048
  6. SPESICOR DOS [Concomitant]
     Indication: HYPERTENSION
     Route: 048
  7. PRIMASPAN [Concomitant]
     Indication: PROPHYLAXIS
     Dosage: 50MG PER DAY
     Route: 048
  8. COZAAR [Concomitant]
     Indication: HYPERTENSION
     Dosage: 100MG PER DAY
     Route: 048

REACTIONS (3)
  - ANGINA PECTORIS [None]
  - MICROCYTIC ANAEMIA [None]
  - SIDEROBLASTIC ANAEMIA [None]
